FAERS Safety Report 5077402-6 (Version None)
Quarter: 2006Q3

REPORT INFORMATION
  Report Type: 
  Country: None (occurrence: None)
  Receive Date: 20060810
  Receipt Date: 20060214
  Transmission Date: 20061208
  Serious: No
  Sender: FDA-Public Use
  Company Number: US-GLAXOSMITHKLINE-A0593677A

PATIENT
  Age: 64 Year
  Sex: Female

DRUGS (4)
  1. PAXIL [Suspect]
     Dosage: 10MG PER DAY
     Route: 048
  2. PROTONIX [Concomitant]
  3. ATIVAN [Concomitant]
  4. ZOCOR [Concomitant]

REACTIONS (1)
  - WEIGHT INCREASED [None]
